APPROVED DRUG PRODUCT: TRUVADA
Active Ingredient: EMTRICITABINE; TENOFOVIR DISOPROXIL FUMARATE
Strength: 100MG;150MG
Dosage Form/Route: TABLET;ORAL
Application: N021752 | Product #002 | TE Code: AB
Applicant: GILEAD SCIENCES INC
Approved: Mar 10, 2016 | RLD: Yes | RS: No | Type: RX